FAERS Safety Report 9678104 (Version 1)
Quarter: 2013Q4

REPORT INFORMATION
  Report Type: Spontaneous
  Country: US (occurrence: US)
  Receive Date: 20131108
  Receipt Date: 20131108
  Transmission Date: 20140711
  Serious: No
  Sender: FDA-Public Use
  Company Number: US-UPSHER-SMITH LABORATORIES, INC.-12002854

PATIENT
  Sex: Male

DRUGS (6)
  1. JANTOVEN [Suspect]
     Indication: PRODUCT USED FOR UNKNOWN INDICATION
     Dosage: 6 MG, QD
     Route: 048
     Dates: end: 20121012
  2. JANTOVEN [Suspect]
     Dosage: 3 MG, QD
     Route: 048
     Dates: start: 20121012, end: 20121016
  3. JANTOVEN [Suspect]
     Dosage: 4 MG, QD
     Route: 048
     Dates: start: 20121016, end: 20121019
  4. JANTOVEN [Suspect]
     Dosage: 6 MG, QD
     Route: 048
     Dates: start: 20121019
  5. AMIODARONE SANDOZ [Suspect]
     Indication: ATRIAL FIBRILLATION
     Dosage: 200 MG, QD
     Route: 048
     Dates: start: 20121012
  6. NOT PROVIDED [Concomitant]

REACTIONS (4)
  - Transient ischaemic attack [Recovered/Resolved]
  - Blindness transient [Recovered/Resolved]
  - Blood pressure increased [Recovered/Resolved]
  - International normalised ratio abnormal [Unknown]
